FAERS Safety Report 5860717-9 (Version None)
Quarter: 2008Q3

REPORT INFORMATION
  Report Type: 
  Country: None (occurrence: None)
  Receive Date: 20080827
  Receipt Date: 20071205
  Transmission Date: 20090109
  Serious: No
  Sender: FDA-Public Use
  Company Number: US-ABBOTT-07P-163-0427515-00

PATIENT
  Age: 66 Year
  Sex: Male
  Weight: 79.904 kg

DRUGS (7)
  1. NIASPAN [Suspect]
     Indication: LIPOPROTEIN (A) INCREASED
     Route: 048
     Dates: start: 20030101, end: 20070801
  2. NIASPAN [Suspect]
     Route: 048
     Dates: start: 20070801, end: 20071001
  3. NIASPAN [Suspect]
     Route: 048
     Dates: start: 20071001
  4. NIASPAN [Suspect]
     Route: 048
     Dates: start: 20010101, end: 20030101
  5. ATORVASTATIN CALCIUM [Concomitant]
     Indication: LIPOPROTEIN (A) INCREASED
     Route: 048
  6. ACETYLSALICYLIC ACID SRT [Concomitant]
     Indication: CARDIOVASCULAR EVENT PROPHYLAXIS
     Route: 048
  7. LANSOPRAZOLE [Concomitant]
     Indication: STOMACH DISCOMFORT
     Route: 048

REACTIONS (1)
  - PLATELET COUNT DECREASED [None]
